FAERS Safety Report 9486041 (Version 1)
Quarter: 2013Q3

REPORT INFORMATION
  Report Type: Report from Study
  Country: US (occurrence: US)
  Receive Date: 20130829
  Receipt Date: 20130829
  Transmission Date: 20140515
  Serious: Yes (Other)
  Sender: FDA-Public Use
  Company Number: US-JNJFOC-20130812692

PATIENT
  Age: 64 Year
  Sex: Male
  Weight: 92.53 kg

DRUGS (2)
  1. SIMPONI [Suspect]
     Indication: PSORIATIC ARTHROPATHY
     Route: 058
     Dates: start: 2011, end: 201307
  2. METHOTREXATE [Suspect]
     Indication: PSORIATIC ARTHROPATHY
     Route: 048
     Dates: start: 2011

REACTIONS (6)
  - Cholelithiasis [Recovered/Resolved]
  - Hepatomegaly [Unknown]
  - Incorrect product storage [Recovered/Resolved]
  - Device issue [Unknown]
  - Device malfunction [Unknown]
  - Drug dose omission [Unknown]
